FAERS Safety Report 8434794-5 (Version None)
Quarter: 2012Q2

REPORT INFORMATION
  Report Type: 
  Country: None (occurrence: None)
  Receive Date: 20120323
  Receipt Date: 20110531
  Transmission Date: 20120825
  Serious: Yes (Hospitalization)
  Sender: FDA-Public Use
  Company Number: 163-21880-11060220

PATIENT
  Age: 64 Year
  Sex: Female

DRUGS (5)
  1. SPIRIVA [Concomitant]
  2. ADVAIR HFA [Concomitant]
  3. REVLIMID [Suspect]
     Indication: LYMPHOCYTIC LEUKAEMIA
     Dosage: 15 MG, 1 IN 1 D, PO
     Route: 048
     Dates: start: 20110301
  4. BONIVA [Concomitant]
  5. SYNTHROID [Concomitant]

REACTIONS (2)
  - DEHYDRATION [None]
  - WHITE BLOOD CELL COUNT DECREASED [None]
